FAERS Safety Report 5776867-1 (Version None)
Quarter: 2008Q2

REPORT INFORMATION
  Report Type: 
  Country: None (occurrence: None)
  Receive Date: 20080601
  Receipt Date: 20080117
  Transmission Date: 20081010
  Serious: No
  Sender: FDA-Public Use
  Company Number: US200801003949

PATIENT
  Sex: Female

DRUGS (2)
  1. BYETTA [Suspect]
     Indication: TYPE 2 DIABETES MELLITUS
     Dosage: 5UG, 2/D, SUBCUTANEOUS; 5 UG, 2/D, SUBCUTANEOUS
     Route: 058
     Dates: start: 20070201
  2. EXENATIDE 5MCG PEN,DISPOSABLE DEVICE (EXENATIDE PEN (5MCG)) PEN,DISPOS [Concomitant]

REACTIONS (1)
  - DRUG PRESCRIBING ERROR [None]
